FAERS Safety Report 4401117-8 (Version None)
Quarter: 2004Q3

REPORT INFORMATION
  Report Type: 
  Country: None (occurrence: None)
  Receive Date: 20040907
  Receipt Date: 20031107
  Transmission Date: 20050211
  Serious: Yes (Other)
  Sender: FDA-Public Use
  Company Number: US-BRISTOL-MYERS SQUIBB COMPANY-12430500

PATIENT
  Age: 65 Year
  Sex: Female
  Weight: 70 kg

DRUGS (3)
  1. COUMADIN [Suspect]
     Indication: PULMONARY THROMBOSIS
     Route: 048
     Dates: start: 20030723, end: 20031022
  2. FLEXERIL [Concomitant]
  3. ESTROGEN PATCH [Concomitant]

REACTIONS (1)
  - HAEMATURIA [None]
